FAERS Safety Report 12520720 (Version 1)
Quarter: 2016Q3

REPORT INFORMATION
  Report Type: Spontaneous
  Country: FR (occurrence: FR)
  Receive Date: 20160701
  Receipt Date: 20160701
  Transmission Date: 20161109
  Serious: Yes (Hospitalization)
  Sender: FDA-Public Use
  Company Number: FR-009507513-1606FRA013654

PATIENT
  Age: 27 Year
  Sex: Male

DRUGS (20)
  1. DOXORUBICIN TEVA [Suspect]
     Active Substance: DOXORUBICIN
     Dosage: 150 MG PER CYCLE (6TH CYCLE)
     Route: 042
     Dates: start: 20160606
  2. LYRICA [Concomitant]
     Active Substance: PREGABALIN
     Indication: PAIN
     Dosage: 200 MG, BID
     Route: 048
     Dates: start: 201601
  3. IFOSFAMIDE. [Suspect]
     Active Substance: IFOSFAMIDE
     Dosage: 10000 MG PER CYCLE (4TH CYCLE)
     Route: 042
     Dates: start: 20160425
  4. DOXORUBICIN TEVA [Suspect]
     Active Substance: DOXORUBICIN
     Dosage: 150 MG PER CYCLE (3RD CYCLE)
     Route: 042
     Dates: start: 20160404
  5. METHYLPREDNISOLONE. [Suspect]
     Active Substance: METHYLPREDNISOLONE
     Indication: PROPHYLAXIS OF NAUSEA AND VOMITING
     Dosage: 80 MG, QD
     Route: 042
     Dates: start: 20160222
  6. IFOSFAMIDE. [Suspect]
     Active Substance: IFOSFAMIDE
     Indication: SARCOMA
     Dosage: 10000 MG PER CYCLE (1ST CYCLE)
     Route: 042
     Dates: start: 20160222
  7. DOXORUBICIN TEVA [Suspect]
     Active Substance: DOXORUBICIN
     Dosage: 150 MG PER CYCLE (5TH CYCLE)
     Route: 042
     Dates: start: 20160517
  8. IFOSFAMIDE. [Suspect]
     Active Substance: IFOSFAMIDE
     Dosage: 10000 MG PER CYCLE (3RD CYCLE)
     Route: 042
     Dates: start: 20160404
  9. IFOSFAMIDE. [Suspect]
     Active Substance: IFOSFAMIDE
     Dosage: 10000 MG PER CYCLE (6TH CYCLE)
     Route: 042
     Dates: start: 20160606
  10. MESNA. [Suspect]
     Active Substance: MESNA
     Indication: PROPHYLAXIS
     Dosage: 5000 MG/M2 PER CYCLE
     Route: 042
  11. ISENTRESS [Concomitant]
     Active Substance: RALTEGRAVIR POTASSIUM
     Indication: ACQUIRED IMMUNODEFICIENCY SYNDROME
     Dosage: 2 DF, QD (400 MG, BID (MORNING AND EVENING))
     Route: 048
     Dates: start: 20160225
  12. DOXORUBICIN TEVA [Suspect]
     Active Substance: DOXORUBICIN
     Dosage: 150 MG PER CYCLE (2ND CYCLE)
     Route: 042
     Dates: start: 20160314
  13. TRUVADA [Concomitant]
     Active Substance: EMTRICITABINE\TENOFOVIR DISOPROXIL FUMARATE
     Indication: ACQUIRED IMMUNODEFICIENCY SYNDROME
     Dosage: 200 MG, QD
     Route: 048
  14. IFOSFAMIDE. [Suspect]
     Active Substance: IFOSFAMIDE
     Dosage: 10000 MG PER CYCLE (5TH CYCLE)
     Route: 042
     Dates: start: 20160517
  15. DOXORUBICIN TEVA [Suspect]
     Active Substance: DOXORUBICIN
     Indication: SARCOMA
     Dosage: 150 MG PER CYCLE (1ST CYCLE)
     Route: 042
     Dates: start: 20160222
  16. EMEND [Suspect]
     Active Substance: APREPITANT
     Indication: PROPHYLAXIS OF NAUSEA AND VOMITING
     Dosage: 80 MG, QD
     Route: 048
     Dates: start: 20160222
  17. DOXORUBICIN TEVA [Suspect]
     Active Substance: DOXORUBICIN
     Dosage: 150 MG PER CYCLE (4TH CYCLE)
     Route: 042
     Dates: start: 20160425
  18. ZOPHREN (ONDANSETRON) [Suspect]
     Active Substance: ONDANSETRON
     Indication: PROPHYLAXIS OF NAUSEA AND VOMITING
     Dosage: 8 MG, QD (STREGTH 2MG/ML)
     Route: 042
     Dates: start: 20160222
  19. BACTRIM [Concomitant]
     Active Substance: SULFAMETHOXAZOLE\TRIMETHOPRIM
     Indication: PROPHYLAXIS
     Dosage: 1 TABLET, 3 TIMES WEEKLY
     Route: 048
     Dates: start: 20160225
  20. IFOSFAMIDE. [Suspect]
     Active Substance: IFOSFAMIDE
     Dosage: 10000 MG PER CYCLE (2ND CYCLE)
     Route: 042
     Dates: start: 20160314

REACTIONS (1)
  - Somnolence [Recovered/Resolved]

NARRATIVE: CASE EVENT DATE: 20160606
